FAERS Safety Report 9132975 (Version 1)
Quarter: 2013Q1

REPORT INFORMATION
  Report Type: Spontaneous
  Country: KR (occurrence: KR)
  Receive Date: 20130301
  Receipt Date: 20130301
  Transmission Date: 20140127
  Serious: Yes (Other)
  Sender: FDA-Public Use
  Company Number: KR-ROCHE-1196602

PATIENT
  Age: 82 Year
  Sex: Male

DRUGS (2)
  1. BEVACIZUMAB [Suspect]
     Indication: RETINAL VEIN OCCLUSION
     Route: 050
  2. BEVACIZUMAB [Suspect]
     Indication: OFF LABEL USE

REACTIONS (2)
  - Blindness [Unknown]
  - Retinal vascular disorder [Unknown]
